FAERS Safety Report 7391087-5 (Version None)
Quarter: 2011Q2

REPORT INFORMATION
  Report Type: 
  Country: None (occurrence: None)
  Receive Date: 20110404
  Receipt Date: 20110328
  Transmission Date: 20111010
  Serious: Yes (Death, Hospitalization, Other)
  Sender: FDA-Public Use
  Company Number: BE-JNJFOC-20110200537

PATIENT
  Sex: Female
  Weight: 65 kg

DRUGS (5)
  1. TRANSTEC [Concomitant]
     Dosage: DURING 3 DAYS
     Route: 065
  2. DURAGESIC-100 [Suspect]
     Indication: PRODUCT USED FOR UNKNOWN INDICATION
     Dosage: DURING 2 DAYS
     Route: 062
  3. CRESTOR [Concomitant]
     Dosage: FOR 5 AND HALF YEARS
     Route: 065
  4. DURAGESIC-100 [Suspect]
     Dosage: DURING 10 DAYS
     Route: 062
  5. TRANSTEC [Concomitant]
     Indication: ILL-DEFINED DISORDER
     Dosage: DURING 6 DAYS
     Route: 065

REACTIONS (3)
  - RENAL CANCER RECURRENT [None]
  - HAEMOPTYSIS [None]
  - HOSPITALISATION [None]
